FAERS Safety Report 8899744 (Version 1)
Quarter: 2012Q4

REPORT INFORMATION
  Report Type: 
  Country: US (occurrence: US)
  Receive Date: 20121108
  Receipt Date: 20121108
  Transmission Date: 20130627
  Serious: No
  Sender: FDA-Public Use
  Company Number: US-AMGEN-USASP2012032000

PATIENT
  Age: 58 Year
  Sex: Female
  Weight: 61.23 kg

DRUGS (6)
  1. ENBREL [Suspect]
     Indication: PRODUCT USED FOR UNKNOWN INDICATION
     Dosage: 50 mg, qwk
     Route: 058
  2. PREDNISONE [Concomitant]
     Dosage: 20 mg, UNK
  3. HYDROXYCHLOROQUINE [Concomitant]
  4. METHOTREXATE [Concomitant]
  5. FOLIC ACID [Concomitant]
     Dosage: 1 mg, UNK
  6. MULTIVITAMINS [Concomitant]

REACTIONS (3)
  - Joint swelling [Unknown]
  - Joint stiffness [Unknown]
  - Arthralgia [Unknown]
